FAERS Safety Report 9361773 (Version 1)
Quarter: 2013Q2

REPORT INFORMATION
  Report Type: Spontaneous
  Country: LV (occurrence: LV)
  Receive Date: 20130621
  Receipt Date: 20130621
  Transmission Date: 20140414
  Serious: Yes (Other)
  Sender: FDA-Public Use
  Company Number: PHHY2013LV061951

PATIENT
  Age: 70 Year
  Sex: Male

DRUGS (7)
  1. OSPAMOX [Suspect]
     Dosage: 1000 MG, ONCE/SINGLE
     Route: 048
     Dates: start: 20130607, end: 20130607
  2. ORFARIN [Concomitant]
  3. TRIFAS [Concomitant]
  4. CONCOR [Concomitant]
  5. PROCORALAN [Concomitant]
  6. CARDACE [Concomitant]
  7. SPIRIX [Concomitant]

REACTIONS (4)
  - Hyperhidrosis [Recovering/Resolving]
  - Dyspnoea [Recovering/Resolving]
  - Abdominal pain [Recovering/Resolving]
  - Pruritus [Recovering/Resolving]
